FAERS Safety Report 8124613-9 (Version None)
Quarter: 2012Q1

REPORT INFORMATION
  Report Type: 
  Country: None (occurrence: None)
  Receive Date: 20120209
  Receipt Date: 20120206
  Transmission Date: 20120608
  Serious: Yes (Death, Life-Threatening, Hospitalization)
  Sender: FDA-Public Use
  Company Number: JP-SANOFI-AVENTIS-2012SA001297

PATIENT
  Age: 69 Year
  Sex: Female
  Weight: 47 kg

DRUGS (10)
  1. DEXAMETHASONE [Concomitant]
     Indication: PREMEDICATION
     Route: 048
     Dates: start: 20110928, end: 20111201
  2. NIZATIDINE [Concomitant]
     Indication: PROPHYLAXIS
     Route: 048
     Dates: start: 20110928, end: 20111201
  3. EPIRUBICIN HYDROCHLORIDE [Concomitant]
     Dates: start: 20110811, end: 20110905
  4. TRASTUZUMAB [Suspect]
     Dosage: 376 MG INITIAL;282 MG FOLLOWING X 3 TIMES
     Route: 041
     Dates: start: 20110928, end: 20111129
  5. DEXAMETHASONE [Concomitant]
  6. DEXAMETHASONE [Concomitant]
  7. CYCLOPHOSPHAMIDE [Concomitant]
     Dates: start: 20110811, end: 20110905
  8. DEXAMETHASONE [Concomitant]
     Indication: PROPHYLAXIS
     Route: 048
     Dates: start: 20110928, end: 20111201
  9. FLUOROURACIL [Concomitant]
     Dates: start: 20110811, end: 20110905
  10. TAXOTERE [Suspect]
     Route: 041
     Dates: start: 20110928, end: 20111129

REACTIONS (1)
  - INTERSTITIAL LUNG DISEASE [None]
